FAERS Safety Report 4577381-1 (Version None)
Quarter: 2005Q1

REPORT INFORMATION
  Report Type: 
  Country: None (occurrence: None)
  Receive Date: 20050210
  Receipt Date: 20050128
  Transmission Date: 20050727
  Serious: Yes (Life-Threatening)
  Sender: FDA-Public Use
  Company Number: AU-GLAXOSMITHKLINE-B0370680A

PATIENT
  Age: 67 Year
  Sex: Female
  Weight: 31 kg

DRUGS (1)
  1. IMIGRAN [Suspect]
     Indication: MIGRAINE
     Dosage: 20MG AS REQUIRED
     Route: 045

REACTIONS (1)
  - STRIDOR [None]
